FAERS Safety Report 4580029-3 (Version None)
Quarter: 2005Q1

REPORT INFORMATION
  Report Type: 
  Country: None (occurrence: None)
  Receive Date: 20050210
  Receipt Date: 20050125
  Transmission Date: 20050727
  Serious: Yes (Life-Threatening, Hospitalization, Other)
  Sender: FDA-Public Use
  Company Number: 2004-00200

PATIENT
  Sex: Female

DRUGS (12)
  1. INTEGRILIN [Suspect]
     Indication: CORONARY ANGIOPLASTY
     Dosage: 10.00 MG X 2,  IV BOLUS
     Route: 040
     Dates: start: 20040623, end: 20040623
  2. HEPARIN [Concomitant]
  3. ASPIRIN [Concomitant]
  4. ZOCOR [Concomitant]
  5. LISINOPRIL (LISINOPRL) [Concomitant]
  6. HYDROCHLOROTHIAZIDE [Concomitant]
  7. FOSAMAX [Concomitant]
  8. SODIUM CHLORIDE [Concomitant]
  9. NITROGLYCERIN [Concomitant]
  10. CALCIUM (CALCIUM) [Concomitant]
  11. VITAMIN E [Concomitant]
  12. MULTIVITAMINS, PLAIN [Concomitant]

REACTIONS (52)
  - ALANINE AMINOTRANSFERASE INCREASED [None]
  - ASPARTATE AMINOTRANSFERASE INCREASED [None]
  - ASTHENIA [None]
  - ATRIAL FIBRILLATION [None]
  - BLOOD ALBUMIN DECREASED [None]
  - BLOOD BILIRUBIN INCREASED [None]
  - BRADYCARDIA [None]
  - BRONCHIAL OEDEMA [None]
  - BRONCHOSCOPY ABNORMAL [None]
  - CARDIO-RESPIRATORY ARREST [None]
  - CHOKING [None]
  - COMA [None]
  - DIARRHOEA [None]
  - DISSEMINATED INTRAVASCULAR COAGULATION [None]
  - DRY MOUTH [None]
  - DYSPHAGIA [None]
  - DYSPHONIA [None]
  - ELECTROLYTE IMBALANCE [None]
  - EXTRASYSTOLES [None]
  - FLUID OVERLOAD [None]
  - HAEMOPTYSIS [None]
  - HYPERGLYCAEMIA [None]
  - HYPERNATRAEMIA [None]
  - HYPERPROTEINAEMIA [None]
  - HYPOKALAEMIA [None]
  - HYPOTENSION [None]
  - JAUNDICE [None]
  - LETHARGY [None]
  - LEUKOCYTOSIS [None]
  - LUNG HYPERINFLATION [None]
  - MALAISE [None]
  - MALNUTRITION [None]
  - METABOLIC ACIDOSIS [None]
  - METABOLIC ENCEPHALOPATHY [None]
  - MYOPATHY STEROID [None]
  - NODAL RHYTHM [None]
  - OEDEMA PERIPHERAL [None]
  - ORAL CANDIDIASIS [None]
  - PAIN IN EXTREMITY [None]
  - PAIN IN JAW [None]
  - PLEURAL EFFUSION [None]
  - PNEUMONIA ASPIRATION [None]
  - PNEUMOTHORAX [None]
  - PROCEDURAL COMPLICATION [None]
  - PROTEIN TOTAL DECREASED [None]
  - PULMONARY HAEMORRHAGE [None]
  - PULMONARY OEDEMA [None]
  - RESPIRATORY FAILURE [None]
  - TACHYCARDIA [None]
  - TACHYPNOEA [None]
  - THROMBOCYTHAEMIA [None]
  - TROPONIN I INCREASED [None]
